FAERS Safety Report 12774000 (Version 2)
Quarter: 2016Q4

REPORT INFORMATION
  Report Type: Spontaneous
  Country: JP (occurrence: JP)
  Receive Date: 20160923
  Receipt Date: 20161101
  Transmission Date: 20170207
  Serious: Yes (Other)
  Sender: FDA-Public Use
  Company Number: JP-ROCHE-1834136

PATIENT
  Age: 43 Year
  Sex: Female
  Weight: 68 kg

DRUGS (5)
  1. PACLITAXEL. [Concomitant]
     Active Substance: PACLITAXEL
     Indication: ADENOCARCINOMA OF THE CERVIX
     Dosage: DOSAGE IS UNCERTAIN.
     Route: 041
     Dates: start: 201601, end: 20160926
  2. CARBOPLATIN. [Concomitant]
     Active Substance: CARBOPLATIN
     Route: 065
     Dates: start: 20160815, end: 20160926
  3. AVASTIN [Suspect]
     Active Substance: BEVACIZUMAB
     Indication: CERVIX CARCINOMA
     Dosage: DATE OF LAST DOSE: 05/SEP/2016
     Route: 041
     Dates: start: 20160815
  4. PACLITAXEL. [Concomitant]
     Active Substance: PACLITAXEL
     Route: 065
     Dates: start: 20160815, end: 20160926
  5. CARBOPLATIN. [Concomitant]
     Active Substance: CARBOPLATIN
     Indication: ADENOCARCINOMA OF THE CERVIX
     Dosage: DOSAGE IS UNCERTAIN.
     Route: 041
     Dates: start: 201601, end: 20160926

REACTIONS (2)
  - Hyperlipidaemia [Recovering/Resolving]
  - Alcoholism [Unknown]

NARRATIVE: CASE EVENT DATE: 20160916
